FAERS Safety Report 14248981 (Version 2)
Quarter: 2017Q4

REPORT INFORMATION
  Report Type: Spontaneous
  Country: FI (occurrence: FI)
  Receive Date: 20171204
  Receipt Date: 20171204
  Transmission Date: 20180321
  Serious: Yes (Hospitalization, Other)
  Sender: FDA-Public Use
  Company Number: PHHY2017FI175140

PATIENT
  Age: 19 Year
  Sex: Female

DRUGS (5)
  1. ASACOL [Concomitant]
     Active Substance: MESALAMINE
     Indication: PRODUCT USED FOR UNKNOWN INDICATION
     Dosage: 1600 MG, BID
     Route: 065
  2. INFLECTRA [Interacting]
     Active Substance: INFLIXIMAB-DYYB
     Indication: COLITIS ULCERATIVE
     Dosage: 300 MG, UNK
     Route: 042
     Dates: start: 20171020
  3. AZAMUN [Concomitant]
     Active Substance: AZATHIOPRINE
     Indication: PRODUCT USED FOR UNKNOWN INDICATION
     Dosage: 50 MG, BID
     Route: 065
  4. INFLECTRA [Interacting]
     Active Substance: INFLIXIMAB-DYYB
     Dosage: UNK
     Route: 042
     Dates: start: 20171031
  5. CICLOSPORIN [Suspect]
     Active Substance: CYCLOSPORINE
     Indication: COLITIS ULCERATIVE
     Dosage: 125 MG, UNK
     Route: 042

REACTIONS (7)
  - Infection [Unknown]
  - Diarrhoea haemorrhagic [Unknown]
  - Drug interaction [Unknown]
  - Colitis [Unknown]
  - Sepsis [Unknown]
  - Product use in unapproved indication [Unknown]
  - Listeriosis [Unknown]
